FAERS Safety Report 17448927 (Version 1)
Quarter: 2020Q1

REPORT INFORMATION
  Report Type: Spontaneous
  Country: CH (occurrence: CH)
  Receive Date: 20200224
  Receipt Date: 20200224
  Transmission Date: 20200409
  Serious: Yes (Other)
  Sender: FDA-Public Use
  Company Number: CH-ASTRAZENECA-2020SE24763

PATIENT
  Age: 577 Month
  Sex: Female

DRUGS (17)
  1. RENVELA [Suspect]
     Active Substance: SEVELAMER CARBONATE
     Route: 065
  2. RESONIUM A [Concomitant]
     Active Substance: SODIUM POLYSTYRENE SULFONATE
     Dates: end: 201909
  3. FERINJECT [Concomitant]
     Active Substance: FERRIC CARBOXYMALTOSE
  4. EXFORGE [Suspect]
     Active Substance: AMLODIPINE BESYLATE\VALSARTAN
     Route: 048
  5. NEPHROTRANS [Concomitant]
     Active Substance: SODIUM BICARBONATE
  6. ALLOPURINOL. [Suspect]
     Active Substance: ALLOPURINOL
     Route: 065
  7. VALSARTAN. [Suspect]
     Active Substance: VALSARTAN
     Route: 065
  8. NASONEX [Concomitant]
     Active Substance: MOMETASONE FUROATE
     Dosage: AS NECESSARY
     Dates: start: 20191217
  9. ROCALTROL [Concomitant]
     Active Substance: CALCITRIOL
  10. LUVIT D3 [Concomitant]
     Active Substance: CHOLECALCIFEROL
  11. ARANESP [Suspect]
     Active Substance: DARBEPOETIN ALFA
     Route: 065
  12. TOREM [Suspect]
     Active Substance: TORSEMIDE
     Route: 048
  13. HEPARIN [Concomitant]
     Active Substance: HEPARIN SODIUM
     Dates: end: 201907
  14. NEXIUM [Suspect]
     Active Substance: ESOMEPRAZOLE MAGNESIUM
     Route: 048
     Dates: end: 20191015
  15. CLEXANE [Suspect]
     Active Substance: ENOXAPARIN SODIUM
     Route: 065
     Dates: start: 201907
  16. SYMBICORT [Concomitant]
     Active Substance: BUDESONIDE\FORMOTEROL FUMARATE DIHYDRATE
     Dosage: AS NECESSARY
     Route: 055
     Dates: start: 20191217
  17. CALCIMAGON D3 [Concomitant]
     Active Substance: CALCIUM\CHOLECALCIFEROL

REACTIONS (1)
  - Diffuse alopecia [Not Recovered/Not Resolved]

NARRATIVE: CASE EVENT DATE: 201911
